FAERS Safety Report 8607016-X (Version None)
Quarter: 2012Q3

REPORT INFORMATION
  Report Type: 
  Country: None (occurrence: None)
  Receive Date: 20120820
  Receipt Date: 20120814
  Transmission Date: 20120928
  Serious: Yes (Other)
  Sender: FDA-Public Use
  Company Number: CA-ROCHE-GNE288171

PATIENT
  Sex: Female
  Weight: 55.059 kg

DRUGS (7)
  1. OMALIZUMAB [Suspect]
     Route: 058
     Dates: start: 20111205
  2. OMALIZUMAB [Suspect]
     Indication: ALLERGY TO ANIMAL
     Dosage: 150 MG, 1/MONTH
     Dates: start: 20090727
  3. OMALIZUMAB [Suspect]
     Dosage: 150 MG, 1/MONTH
     Dates: start: 20101229
  4. OMALIZUMAB [Suspect]
     Route: 058
     Dates: start: 20090504
  5. OMALIZUMAB [Suspect]
     Indication: ASTHMA
     Dosage: 150 MG, 1/MONTH
     Route: 058
     Dates: start: 20071105
  6. OMALIZUMAB [Suspect]
     Route: 058
     Dates: start: 20120814
  7. ADVAIR [Concomitant]
     Indication: PRODUCT USED FOR UNKNOWN INDICATION

REACTIONS (15)
  - LOWER RESPIRATORY TRACT INFECTION [None]
  - LARYNGITIS [None]
  - PRODUCTIVE COUGH [None]
  - WHEEZING [None]
  - SOMNOLENCE [None]
  - SLEEP DISORDER [None]
  - DYSPNOEA [None]
  - ASTHMA [None]
  - CHEST PAIN [None]
  - LETHARGY [None]
  - COUGH [None]
  - ANXIETY [None]
  - INFLUENZA [None]
  - HYPERSENSITIVITY [None]
  - NASOPHARYNGITIS [None]
